FAERS Safety Report 19439789 (Version 2)
Quarter: 2022Q2

REPORT INFORMATION
  Report Type: Spontaneous
  Country: US (occurrence: US)
  Receive Date: 20210620
  Receipt Date: 20220513
  Transmission Date: 20220720
  Serious: No
  Sender: FDA-Public Use
  Company Number: US-SA-SAC20210616001083

PATIENT
  Age: 5 Year
  Sex: Female
  Weight: 18 kg

DRUGS (11)
  1. DUPIXENT [Suspect]
     Active Substance: DUPILUMAB
     Indication: Dermatitis atopic
     Dosage: 300 MG, Q4W (EVERY 30 DAYS)
     Route: 058
  2. CETIRIZINE HCL [Concomitant]
     Active Substance: CETIRIZINE HYDROCHLORIDE
  3. FLUTICASONE PROPIONATE [Concomitant]
     Active Substance: FLUTICASONE PROPIONATE
  4. HYDROXYZINE HYDROCHLORIDE [Concomitant]
     Active Substance: HYDROXYZINE HYDROCHLORIDE
  5. MONTELUKAST SODIUM [Concomitant]
     Active Substance: MONTELUKAST SODIUM
  6. MUPIROCIN [Concomitant]
     Active Substance: MUPIROCIN
  7. TACROLIMUS [Concomitant]
     Active Substance: TACROLIMUS
     Indication: Dermatitis atopic
  8. ALBUTEROL [Concomitant]
     Active Substance: ALBUTEROL
  9. BETAMETHASONE VALERATE [Concomitant]
     Active Substance: BETAMETHASONE VALERATE
     Indication: Dermatitis atopic
  10. FLUOCINONIDE [Concomitant]
     Active Substance: FLUOCINONIDE
  11. VANICREAM [Concomitant]
     Active Substance: TITANIUM DIOXIDE\ZINC OXIDE

REACTIONS (3)
  - Dermatitis atopic [Not Recovered/Not Resolved]
  - Scratch [Not Recovered/Not Resolved]
  - Product dose omission in error [Unknown]
